FAERS Safety Report 25836901 (Version 5)
Quarter: 2025Q4

REPORT INFORMATION
  Report Type: Spontaneous
  Country: EU (occurrence: EU)
  Receive Date: 20250923
  Receipt Date: 20251210
  Transmission Date: 20260117
  Serious: No
  Sender: PFIZER
  Company Number: EU-PFIZER INC-202500181848

PATIENT
  Sex: Female

DRUGS (1)
  1. ENBREL [Suspect]
     Active Substance: ETANERCEPT
     Dosage: 50 MG
     Dates: start: 2023

REACTIONS (3)
  - Pyrexia [Unknown]
  - Device occlusion [Unknown]
  - Drug dose omission by device [Unknown]

NARRATIVE: CASE EVENT DATE: 20250912
